FAERS Safety Report 8310214-6 (Version None)
Quarter: 2012Q2

REPORT INFORMATION
  Report Type: 
  Country: None (occurrence: None)
  Receive Date: 20120425
  Receipt Date: 20120410
  Transmission Date: 20120825
  Serious: Yes (Death, Life-Threatening)
  Sender: FDA-Public Use
  Company Number: CA-INCYTE CORPORATION-2012IN000659

PATIENT
  Age: 78 Year
  Sex: Female

DRUGS (2)
  1. INC424 [Suspect]
     Indication: MYELOFIBROSIS
     Dosage: 20 MG, BID
     Route: 048
     Dates: start: 20120323, end: 20120406
  2. ARANESP [Concomitant]
     Dosage: UNK

REACTIONS (4)
  - MYOCARDIAL INFARCTION [None]
  - ANAEMIA [None]
  - PNEUMONIA [None]
  - PNEUMONIA ASPIRATION [None]
